FAERS Safety Report 6273719-8 (Version None)
Quarter: 2009Q3

REPORT INFORMATION
  Report Type: 
  Country: None (occurrence: None)
  Receive Date: 20090713
  Receipt Date: 20080528
  Transmission Date: 20100115
  Serious: Yes (Other)
  Sender: FDA-Public Use
  Company Number: 566878

PATIENT
  Age: 63 Year
  Sex: Female
  Weight: 62.6 kg

DRUGS (9)
  1. BONIVA [Suspect]
     Indication: OSTEOPOROSIS
     Dosage: 150 MG 1 PER MONTH
     Dates: end: 20080519
  2. ADVAIR DISKUS 100/50 [Concomitant]
  3. ZANTAC [Concomitant]
  4. FISH OIL (FATTY ACIDS NOS) [Concomitant]
  5. CALCIUM NOS (CALCIUM) [Concomitant]
  6. QUINAPRIL (CHINAPRYL) [Concomitant]
  7. CLONAZEPAM [Concomitant]
  8. TIAZAC [Concomitant]
  9. ALLEGRA [Concomitant]

REACTIONS (12)
  - CONFUSIONAL STATE [None]
  - CONSTIPATION [None]
  - DIARRHOEA [None]
  - DYSGEUSIA [None]
  - FATIGUE [None]
  - FEELING JITTERY [None]
  - HEART RATE INCREASED [None]
  - HYPERHIDROSIS [None]
  - HYPERTENSION [None]
  - ILL-DEFINED DISORDER [None]
  - MUSCLE SPASMS [None]
  - PRODUCT COUNTERFEIT [None]
